FAERS Safety Report 7194468-8 (Version None)
Quarter: 2010Q4

REPORT INFORMATION
  Report Type: 
  Country: None (occurrence: None)
  Receive Date: 20101223
  Receipt Date: 20101216
  Transmission Date: 20110411
  Serious: Yes (Life-Threatening, Hospitalization)
  Sender: FDA-Public Use
  Company Number: GB-ASTRAZENECA-2010SE59548

PATIENT
  Sex: Male

DRUGS (3)
  1. LIDOCAINE HYDROCHLORIDE [Suspect]
     Indication: ANAESTHESIA
     Dosage: 25 ML/500 MG
     Route: 065
  2. LIDOCAINE HYDROCHLORIDE [Suspect]
     Indication: BRONCHOSCOPY
     Dosage: 25 ML/500 MG
     Route: 065
  3. XYLOCAINE [Suspect]
     Indication: ANAESTHESIA
     Route: 065

REACTIONS (4)
  - CARDIO-RESPIRATORY ARREST [None]
  - DEPRESSED LEVEL OF CONSCIOUSNESS [None]
  - DYSKINESIA [None]
  - RESPIRATORY RATE INCREASED [None]
